FAERS Safety Report 9516208 (Version 1)
Quarter: 2013Q3

REPORT INFORMATION
  Report Type: Spontaneous
  Country: TR (occurrence: None)
  Receive Date: 20130909
  Receipt Date: 20130909
  Transmission Date: 20140515
  Serious: Yes (Other)
  Sender: FDA-Public Use
  Company Number: SYM-2013-10364

PATIENT
  Sex: 0

DRUGS (3)
  1. FLUOROURACIL [Suspect]
     Indication: METASTATIC GASTRIC CANCER
     Route: 042
  2. DOCETAXEL [Suspect]
     Indication: METASTATIC GASTRIC CANCER
     Route: 042
  3. CISPLATIN [Suspect]
     Indication: METASTATIC GASTRIC CANCER
     Route: 042

REACTIONS (1)
  - Anaemia [None]
